FAERS Safety Report 8235156-6 (Version None)
Quarter: 2012Q1

REPORT INFORMATION
  Report Type: 
  Country: None (occurrence: None)
  Receive Date: 20120322
  Receipt Date: 20120313
  Transmission Date: 20120608
  Serious: Yes (Hospitalization)
  Sender: FDA-Public Use
  Company Number: ALK_02363_2012

PATIENT
  Sex: Female
  Weight: 53.978 kg

DRUGS (1)
  1. VIVITROL [Suspect]
     Indication: DRUG DEPENDENCE
     Dates: start: 20111204

REACTIONS (3)
  - PROCEDURAL PAIN [None]
  - ROAD TRAFFIC ACCIDENT [None]
  - CLAVICLE FRACTURE [None]
